FAERS Safety Report 18763848 (Version 1)
Quarter: 2021Q1

REPORT INFORMATION
  Report Type: Spontaneous
  Country: US (occurrence: US)
  Receive Date: 20210120
  Receipt Date: 20210120
  Transmission Date: 20210419
  Serious: Yes (Other)
  Sender: FDA-Public Use
  Company Number: US-SLATE RUN PHARMACEUTICALS-21US000381

PATIENT

DRUGS (5)
  1. TETRABENAZINE. [Suspect]
     Active Substance: TETRABENAZINE
     Indication: CHOREA
     Dosage: MEDICATIONS WERE REDUCED
     Route: 065
  2. HALOPERIDOL. [Suspect]
     Active Substance: HALOPERIDOL
     Indication: BALLISMUS
     Dosage: ESCALATING DOSES
     Route: 065
  3. ANESTHETICS, GENERAL [Concomitant]
     Active Substance: UNSPECIFIED INGREDIENT
     Indication: PALLIDOTOMY
     Route: 065
  4. TETRABENAZINE. [Suspect]
     Active Substance: TETRABENAZINE
     Indication: BALLISMUS
     Dosage: ESCALATING DOSES
     Route: 065
  5. HALOPERIDOL. [Suspect]
     Active Substance: HALOPERIDOL
     Indication: CHOREA
     Dosage: MEDICATIONS WERE REDUCED
     Route: 065

REACTIONS (7)
  - Limb discomfort [Not Recovered/Not Resolved]
  - Dysarthria [Not Recovered/Not Resolved]
  - Off label use [Recovered/Resolved]
  - Musculoskeletal disorder [Not Recovered/Not Resolved]
  - Sedation [Unknown]
  - Diarrhoea [Unknown]
  - Mental status changes [Unknown]
